FAERS Safety Report 8218764-8 (Version None)
Quarter: 2012Q1

REPORT INFORMATION
  Report Type: 
  Country: None (occurrence: None)
  Receive Date: 20120319
  Receipt Date: 20120312
  Transmission Date: 20120608
  Serious: Yes (Hospitalization)
  Sender: FDA-Public Use
  Company Number: PHHY2012IL002783

PATIENT
  Age: 63 Year
  Sex: Female

DRUGS (3)
  1. SANDOSTATIN LAR [Suspect]
     Dosage: 30 MG, EVERY 28 DAYS
     Dates: start: 20120213
  2. SANDOSTATIN LAR [Suspect]
     Indication: CARCINOID SYNDROME
     Dosage: 30 MG, EVERY 28 DAYS
     Dates: start: 20090621
  3. SANDOSTATIN LAR [Suspect]
     Dosage: 30 MG, EVERY 28 DAYS
     Dates: start: 20111218

REACTIONS (6)
  - HAEMOGLOBIN DECREASED [None]
  - THROMBOCYTOPENIA [None]
  - INJECTION SITE SWELLING [None]
  - RENAL PAIN [None]
  - INJECTION SITE ANAESTHESIA [None]
  - INJECTION SITE PAIN [None]
